FAERS Safety Report 10881454 (Version 1)
Quarter: 2015Q1

REPORT INFORMATION
  Report Type: Other
  Country: IE (occurrence: IE)
  Receive Date: 20150303
  Receipt Date: 20150303
  Transmission Date: 20150721
  Serious: Yes (Other)
  Sender: FDA-Public Use
  Company Number: IE-MYLANLABS-2015M1005141

PATIENT

DRUGS (2)
  1. GEROZAC 20MG CAPSULES HARD [Suspect]
     Active Substance: FLUOXETINE\FLUOXETINE HYDROCHLORIDE
     Indication: PRODUCT USED FOR UNKNOWN INDICATION
     Dosage: 20 MG, QD
     Route: 048
     Dates: start: 20150110, end: 20150202
  2. LYCIMOR [Concomitant]
     Indication: ACNE
     Dosage: 300 MG, QD

REACTIONS (4)
  - Dizziness [Unknown]
  - Product substitution issue [Recovered/Resolved]
  - Depressed mood [Unknown]
  - Nausea [Unknown]

NARRATIVE: CASE EVENT DATE: 20150110
